FAERS Safety Report 5296015-4 (Version None)
Quarter: 2007Q1

REPORT INFORMATION
  Report Type: 
  Country: None (occurrence: None)
  Receive Date: 20070201
  Receipt Date: 20061020
  Transmission Date: 20070707
  Serious: No
  Sender: FDA-Public Use
  Company Number: 2006PV024020

PATIENT
  Age: 64 Year
  Sex: Male
  Weight: 111.5849 kg

DRUGS (10)
  1. BYETTA [Suspect]
     Indication: DRUG USE FOR UNKNOWN INDICATION
     Dosage: 10 MCG;SC
     Route: 058
     Dates: start: 20060501
  2. AVANDIA [Concomitant]
  3. AMARYL [Concomitant]
  4. GLUCOPHAGE [Concomitant]
  5. ACCUPRIL [Concomitant]
  6. ASPIRIN [Concomitant]
  7. CATAPRESS TTS PATCH [Concomitant]
  8. RHINOCORT [Concomitant]
  9. COUMADIN [Concomitant]
  10. CARDIZEM [Concomitant]

REACTIONS (3)
  - ERECTILE DYSFUNCTION [None]
  - SKIN DISCOLOURATION [None]
  - WEIGHT DECREASED [None]
